FAERS Safety Report 21781488 (Version 2)
Quarter: 2025Q4

REPORT INFORMATION
  Report Type: Other
  Country: EU (occurrence: EU)
  Receive Date: 20221227
  Receipt Date: 20251201
  Transmission Date: 20260119
  Serious: Yes (Other)
  Sender: MACLEODS
  Company Number: EU-MACLEODS PHARMACEUTICALS US LTD-MAC2022038880

PATIENT

DRUGS (2)
  1. LEVOFLOXACIN [Suspect]
     Active Substance: LEVOFLOXACIN
     Indication: Tuberculosis
     Dosage: 1 DOSAGE FORM, QD (START DATE: UNKNOWN DATE IN MAY 2022; STOP DATE: 27 JUN 2022, 1-0-0)
     Route: 048
     Dates: start: 202205, end: 20220627
  2. MOXIFLOXACIN [Suspect]
     Active Substance: MOXIFLOXACIN
     Indication: Tuberculosis
     Dosage: 1 DOSAGE FORM, QD (STOP DATE: UNKNOWN DATE IN MAY 2022, 1-0-0)
     Route: 048
     Dates: start: 20220516, end: 202205

REACTIONS (13)
  - Angina pectoris [Recovering/Resolving]
  - Musculoskeletal stiffness [Not Recovered/Not Resolved]
  - Tendon discomfort [Not Recovered/Not Resolved]
  - Chest discomfort [Recovering/Resolving]
  - Chest discomfort [Recovering/Resolving]
  - Pain in extremity [Not Recovered/Not Resolved]
  - Tendon pain [Not Recovered/Not Resolved]
  - Tachycardia [Recovering/Resolving]
  - Arthralgia [Not Recovered/Not Resolved]
  - Palpitations [Recovering/Resolving]
  - Dyspnoea [Recovering/Resolving]
  - Early retirement [Not Recovered/Not Resolved]
  - Quality of life decreased [Not Recovered/Not Resolved]

NARRATIVE: CASE EVENT DATE: 20220520
